FAERS Safety Report 8481011-6 (Version None)
Quarter: 2012Q3

REPORT INFORMATION
  Report Type: 
  Country: None (occurrence: None)
  Receive Date: 20120702
  Receipt Date: 20120621
  Transmission Date: 20120928
  Serious: Yes (Death)
  Sender: FDA-Public Use
  Company Number: JP-GENZYME-THYM-1003298

PATIENT
  Sex: Male
  Weight: 65 kg

DRUGS (10)
  1. OMEPRAZOLE [Concomitant]
     Indication: PROPHYLAXIS
     Dosage: UNK
     Route: 065
     Dates: start: 20110510, end: 20110518
  2. CORTICOSTEROID NOS [Concomitant]
     Indication: ACUTE GRAFT VERSUS HOST DISEASE
     Dosage: UNK
     Route: 065
     Dates: start: 20110505, end: 20110518
  3. PREDNISOLONE [Concomitant]
     Indication: GRAFT VERSUS HOST DISEASE
     Dosage: UNK
     Route: 065
     Dates: start: 20110509, end: 20110518
  4. TACROLIMUS [Concomitant]
     Indication: GRAFT VERSUS HOST DISEASE
     Dosage: UNK
     Route: 065
     Dates: start: 20110329, end: 20110518
  5. GANCICLOVIR [Concomitant]
     Indication: HUMAN HERPESVIRUS 6 INFECTION
     Dosage: UNK
     Route: 065
     Dates: start: 20110505, end: 20110518
  6. DOPAMINE HCL [Concomitant]
     Indication: BLOOD PRESSURE DECREASED
     Dosage: UNK
     Route: 065
     Dates: start: 20110513, end: 20110518
  7. AMPHOTERICIN B [Concomitant]
     Indication: FUNGAL INFECTION
     Dosage: UNK
     Route: 065
     Dates: start: 20110518, end: 20110518
  8. INSULIN HUMAN [Concomitant]
     Indication: PRODUCT USED FOR UNKNOWN INDICATION
     Dosage: UNK
     Route: 065
     Dates: start: 20110514, end: 20110516
  9. MICAFUNGIN SODIUM [Concomitant]
     Indication: ANTIFUNGAL PROPHYLAXIS
     Dosage: UNK
     Route: 065
     Dates: start: 20110401, end: 20110518
  10. THYMOGLOBULIN [Suspect]
     Indication: ACUTE GRAFT VERSUS HOST DISEASE
     Dosage: 65 MG, QD
     Route: 065
     Dates: start: 20110512, end: 20110515

REACTIONS (3)
  - ARRHYTHMIA [None]
  - PNEUMONIA ASPIRATION [None]
  - HERPES SIMPLEX [None]
